FAERS Safety Report 15808708 (Version 1)
Quarter: 2019Q1

REPORT INFORMATION
  Report Type: Spontaneous
  Country: US (occurrence: US)
  Receive Date: 20190110
  Receipt Date: 20190110
  Transmission Date: 20190417
  Serious: No
  Sender: FDA-Public Use
  Company Number: US-NOVOPROD-630064

PATIENT
  Age: 23 Year
  Sex: Male

DRUGS (1)
  1. FIASP 3ML PDS290 [Suspect]
     Active Substance: INSULIN ASPART
     Indication: TYPE 1 DIABETES MELLITUS
     Dosage: 10 TO 12 UNITS, 5 TO 6 TIMES DAILY
     Route: 058
     Dates: start: 2018

REACTIONS (3)
  - Blood glucose increased [Unknown]
  - Product quality issue [Unknown]
  - Drug ineffective [Unknown]

NARRATIVE: CASE EVENT DATE: 20181005
